FAERS Safety Report 20439736 (Version 1)
Quarter: 2022Q1

REPORT INFORMATION
  Report Type: Spontaneous
  Country: US (occurrence: None)
  Receive Date: 20220204
  Receipt Date: 20220204
  Transmission Date: 20220423
  Serious: Yes (unspecified)
  Sender: FDA-Public Use
  Company Number: None

PATIENT
  Age: 41 Year
  Sex: Female
  Weight: 63 kg

DRUGS (1)
  1. MINOCYCLINE [Suspect]
     Active Substance: MINOCYCLINE HYDROCHLORIDE
     Indication: Product used for unknown indication

REACTIONS (6)
  - Hair growth abnormal [None]
  - Facial pain [None]
  - Emotional distress [None]
  - Madarosis [None]
  - Ingrown hair [None]
  - Unevaluable event [None]

NARRATIVE: CASE EVENT DATE: 20220104
